FAERS Safety Report 4541300-4 (Version None)
Quarter: 2004Q4

REPORT INFORMATION
  Report Type: 
  Country: None (occurrence: None)
  Receive Date: 20041228
  Receipt Date: 20041215
  Transmission Date: 20050328
  Serious: Yes (Hospitalization)
  Sender: FDA-Public Use
  Company Number: WAES 0412USA01867

PATIENT
  Age: 68 Year
  Sex: Female
  Weight: 179.6244 kg

DRUGS (11)
  1. VIOXX [Suspect]
     Indication: POLYMYALGIA RHEUMATICA
     Dosage: 25 MG/DAILY/PO
     Route: 048
     Dates: start: 20011001, end: 20040928
  2. PREDNISONE [Suspect]
     Indication: POLYMYALGIA RHEUMATICA
     Dosage: 40 MG/
     Dates: start: 20041101
  3. ACTONEL [Concomitant]
  4. LIPITOR [Concomitant]
  5. PLAVIX [Concomitant]
  6. TUMS [Concomitant]
  7. ASPIRIN [Concomitant]
  8. FOLIC ACID [Concomitant]
  9. METHOTREXATE [Concomitant]
  10. TIMOLOL MALEATE [Concomitant]
  11. VITAMIN E [Concomitant]

REACTIONS (3)
  - CHEST DISCOMFORT [None]
  - CHEST PAIN [None]
  - GLAUCOMA [None]
